FAERS Safety Report 24203025 (Version 4)
Quarter: 2024Q3

REPORT INFORMATION
  Report Type: Report from Study
  Country: ES (occurrence: ES)
  Receive Date: 20240813
  Receipt Date: 20240821
  Transmission Date: 20241016
  Serious: Yes (Hospitalization)
  Sender: ABBVIE
  Company Number: ES-ABBVIE-5874685

PATIENT
  Age: 78 Year
  Sex: Male

DRUGS (3)
  1. CARBIDOPA\LEVODOPA [Suspect]
     Active Substance: CARBIDOPA\LEVODOPA
     Indication: Parkinson^s disease
     Route: 050
     Dates: start: 20220127, end: 202408
  2. CARBIDOPA\LEVODOPA [Suspect]
     Active Substance: CARBIDOPA\LEVODOPA
     Dosage: RESTARTED
     Route: 050
     Dates: start: 20240810
  3. SINEMET [Concomitant]
     Active Substance: CARBIDOPA\LEVODOPA
     Indication: Product used for unknown indication
     Dosage: SINEMET RETARD
     Route: 048
     Dates: start: 202408

REACTIONS (7)
  - Visual impairment [Recovering/Resolving]
  - Eye infarction [Recovering/Resolving]
  - Optic neuritis [Not Recovered/Not Resolved]
  - Impaired quality of life [Unknown]
  - Disinhibition [Recovering/Resolving]
  - Psychomotor hyperactivity [Recovering/Resolving]
  - Logorrhoea [Recovering/Resolving]

NARRATIVE: CASE EVENT DATE: 20240801
